FAERS Safety Report 9900812 (Version 3)
Quarter: 2015Q2

REPORT INFORMATION
  Report Type: Spontaneous
  Country: IT (occurrence: IT)
  Receive Date: 20140217
  Receipt Date: 20150519
  Transmission Date: 20150821
  Serious: Yes (Death)
  Sender: FDA-Public Use
  Company Number: IT-TEVA-460962ISR

PATIENT
  Age: 49 Year
  Sex: Male

DRUGS (2)
  1. THEOPHYLLINE [Suspect]
     Active Substance: THEOPHYLLINE ANHYDROUS
     Indication: CAPILLARY LEAK SYNDROME
     Dosage: 375 MILLIGRAM DAILY;
     Route: 065
  2. VERAPAMIL [Suspect]
     Active Substance: VERAPAMIL HYDROCHLORIDE
     Indication: CAPILLARY LEAK SYNDROME
     Dosage: 80 MILLIGRAM DAILY; UP TO 240MG
     Route: 065

REACTIONS (6)
  - Multi-organ failure [Fatal]
  - Hypotension [Unknown]
  - Hypovolaemic shock [Fatal]
  - Tremor [Unknown]
  - Tachycardia [Unknown]
  - Cardiac arrest [Fatal]
